FAERS Safety Report 25389495 (Version 1)
Quarter: 2025Q2

REPORT INFORMATION
  Report Type: Report from Study
  Country: CA (occurrence: CA)
  Receive Date: 20250603
  Receipt Date: 20250603
  Transmission Date: 20250717
  Serious: Yes (Other)
  Sender: JOHNSON AND JOHNSON
  Company Number: CA-JNJFOC-20240302713

PATIENT
  Age: 68 Year
  Sex: Female

DRUGS (1)
  1. SIMPONI [Suspect]
     Active Substance: GOLIMUMAB
     Indication: Ankylosing spondylitis
     Route: 058
     Dates: start: 20230329

REACTIONS (3)
  - Diabetes mellitus [Unknown]
  - Peripheral swelling [Recovering/Resolving]
  - Localised infection [Recovered/Resolved]

NARRATIVE: CASE EVENT DATE: 20240801
